FAERS Safety Report 7473351-4 (Version None)
Quarter: 2011Q2

REPORT INFORMATION
  Report Type: 
  Country: None (occurrence: None)
  Receive Date: 20110511
  Receipt Date: 20110502
  Transmission Date: 20111010
  Serious: Yes (Hospitalization, Disabling)
  Sender: FDA-Public Use
  Company Number: FR-ASTRAZENECA-2011SE25388

PATIENT
  Age: 46 Year
  Sex: Male

DRUGS (6)
  1. INSULIN [Concomitant]
  2. RADIOIODINE THERAPY [Concomitant]
  3. ROSUVASTATIN [Suspect]
     Route: 048
  4. CALCIUM [Concomitant]
  5. VALSARTAN [Concomitant]
  6. VITAMIN D [Concomitant]

REACTIONS (6)
  - PARALYSIS [None]
  - MYOPATHY [None]
  - BLOOD THYROID STIMULATING HORMONE INCREASED [None]
  - COMPARTMENT SYNDROME [None]
  - HYPONATRAEMIA [None]
  - HYPOCALCAEMIA [None]
